FAERS Safety Report 8130015-1 (Version None)
Quarter: 2012Q1

REPORT INFORMATION
  Report Type: 
  Country: None (occurrence: None)
  Receive Date: 20120210
  Receipt Date: 20120202
  Transmission Date: 20120608
  Serious: Yes (Other)
  Sender: FDA-Public Use
  Company Number: US-ABBOTT-12P-163-0902167-00

PATIENT
  Age: 26 Year
  Sex: Male

DRUGS (8)
  1. ENBREL [Suspect]
     Indication: PRODUCT USED FOR UNKNOWN INDICATION
     Dates: end: 20111201
  2. NAPROXEN (ALEVE) [Concomitant]
     Indication: PAIN
  3. NAPROXEN (ALEVE) [Concomitant]
     Indication: SWELLING
  4. HUMIRA [Suspect]
     Dates: start: 20120205
  5. UNKNOWN GENERAL ANESTHESIA [Suspect]
     Dates: start: 20120101, end: 20120101
  6. HUMIRA [Suspect]
     Indication: PSORIATIC ARTHROPATHY
     Route: 058
     Dates: start: 20030101, end: 20040101
  7. UNKNOWN GENERAL ANESTHESIA [Suspect]
     Indication: PRODUCT USED FOR UNKNOWN INDICATION
     Dates: start: 20110101, end: 20110101
  8. NORCO [Concomitant]
     Indication: PROCEDURAL PAIN
     Dosage: 7.5/325 MG EVERY 4 TO 6 HOURS AS NEEDED

REACTIONS (6)
  - JOINT SWELLING [None]
  - INJECTION SITE PAIN [None]
  - ARTHRALGIA [None]
  - CLAVICLE FRACTURE [None]
  - FALL [None]
  - NAUSEA [None]
